FAERS Safety Report 8390033-5 (Version None)
Quarter: 2012Q2

REPORT INFORMATION
  Report Type: 
  Country: None (occurrence: None)
  Receive Date: 20120529
  Receipt Date: 20120515
  Transmission Date: 20120825
  Serious: Yes (Hospitalization)
  Sender: FDA-Public Use
  Company Number: US-SANOFI-AVENTIS-2012SA029389

PATIENT
  Sex: Female
  Weight: 68 kg

DRUGS (5)
  1. ZOLOFT [Concomitant]
     Dosage: 1 OR 2 DAILY
  2. LANTUS [Suspect]
     Dosage: 35-50 UNITS/DAY - PER FBS AM
     Route: 058
     Dates: start: 20100601
  3. LABETALOL HCL [Concomitant]
     Indication: HYPERTENSION
     Dates: start: 20091001
  4. SOLOSTAR [Suspect]
     Dates: start: 20100101
  5. LIPITOR [Concomitant]
     Dates: start: 20120401

REACTIONS (1)
  - BREAST CANCER [None]
